FAERS Safety Report 18426967 (Version 1)
Quarter: 2020Q4

REPORT INFORMATION
  Report Type: Report from Study
  Country: FI (occurrence: FI)
  Receive Date: 20201026
  Receipt Date: 20201026
  Transmission Date: 20210114
  Serious: Yes (Hospitalization)
  Sender: FDA-Public Use
  Company Number: FI-MYLANLABS-2020M1089411

PATIENT
  Age: 19 Year
  Sex: Male

DRUGS (6)
  1. TEMESTA                            /00273201/ [Concomitant]
     Active Substance: LORAZEPAM
     Dosage: 1 MG + 1 MG PER DAY
  2. ZYPREXA [Concomitant]
     Active Substance: OLANZAPINE
     Dosage: 10 MG + 15 MG PER DAY
  3. LEPONEX [Suspect]
     Active Substance: CLOZAPINE
     Indication: PRODUCT USED FOR UNKNOWN INDICATION
     Dosage: 500 MILLIGRAM, QD
     Dates: start: 2020, end: 2020
  4. BETMIGA [Concomitant]
     Active Substance: MIRABEGRON
     Dosage: 50 MILLIGRAM X 1(ONCE PER DAY)
  5. LEPONEX [Suspect]
     Active Substance: CLOZAPINE
     Dosage: RESTARTED FROM THE BEGINNING FOR A LESS THAN A WEEK
     Dates: start: 2020, end: 2020
  6. LEPONEX [Suspect]
     Active Substance: CLOZAPINE
     Dosage: 450 MILLIGRAM, QD
     Dates: start: 2020

REACTIONS (2)
  - Condition aggravated [Unknown]
  - Antipsychotic drug level decreased [Unknown]

NARRATIVE: CASE EVENT DATE: 2020
